FAERS Safety Report 22344525 (Version 2)
Quarter: 2023Q2

REPORT INFORMATION
  Report Type: Spontaneous
  Country: JP (occurrence: JP)
  Receive Date: 20230519
  Receipt Date: 20230530
  Transmission Date: 20230721
  Serious: Yes (Hospitalization, Other)
  Sender: FDA-Public Use
  Company Number: JP-GLAXOSMITHKLINE-JP2023JPN069601

PATIENT

DRUGS (1)
  1. VALTREX [Suspect]
     Active Substance: VALACYCLOVIR HYDROCHLORIDE
     Indication: Herpes zoster
     Dosage: 3000 MG/DAY

REACTIONS (11)
  - Toxic encephalopathy [Unknown]
  - Altered state of consciousness [Recovered/Resolved]
  - Dehydration [Unknown]
  - Hallucination, visual [Recovered/Resolved]
  - Renal tubular disorder [Unknown]
  - Postrenal failure [Unknown]
  - Dyslalia [Recovered/Resolved]
  - Balance disorder [Unknown]
  - Dysarthria [Unknown]
  - Oliguria [Unknown]
  - Confusional state [Unknown]
